FAERS Safety Report 9751992 (Version 1)
Quarter: 2013Q4

REPORT INFORMATION
  Report Type: Spontaneous
  Country: CA (occurrence: None)
  Receive Date: 20131211
  Receipt Date: 20131211
  Transmission Date: 20140711
  Serious: Yes (Hospitalization)
  Sender: FDA-Public Use
  Company Number: UTC-020696

PATIENT
  Age: 66 Year
  Sex: Female
  Weight: 101 kg

DRUGS (1)
  1. REMODULIN [Suspect]
     Indication: PULMONARY ARTERIAL HYPERTENSION
     Dosage: .029 CC/HR
     Route: 058
     Dates: start: 20090221

REACTIONS (6)
  - Aortic stenosis [None]
  - Hypertension [None]
  - Dyspnoea [None]
  - Somnolence [None]
  - Palpitations [None]
  - Nervousness [None]
